FAERS Safety Report 24169840 (Version 1)
Quarter: 2024Q3

REPORT INFORMATION
  Report Type: Spontaneous
  Country: DE (occurrence: DE)
  Receive Date: 20240803
  Receipt Date: 20240803
  Transmission Date: 20241016
  Serious: Yes (Hospitalization)
  Sender: BAXTER
  Company Number: DE-DCGMA-24203579

PATIENT
  Age: 24 Year
  Sex: Female
  Weight: 48 kg

DRUGS (13)
  1. SEVOFLURANE [Suspect]
     Active Substance: SEVOFLURANE
     Indication: Sedation
     Dosage: (DOSAGE TEXT: DOSING ACCORDING TO SEDATION DEPTH)
     Dates: end: 20240620
  2. PERAMPANEL [Concomitant]
     Active Substance: PERAMPANEL
     Indication: Partial seizures
     Dosage: 12 MG (MILLIGRAM) IN ONE DAY
     Route: 048
  3. HEPARIN [Concomitant]
     Active Substance: HEPARIN SODIUM
     Indication: Thrombosis prophylaxis
     Route: 042
  4. FENTANYL [Concomitant]
     Active Substance: FENTANYL\FENTANYL CITRATE
     Indication: Pain
     Dosage: (DOSAGE TEXT: DOSING: ACCORDING TO SEDATION DEPTH)
     Route: 042
  5. REMIFENTANIL [Concomitant]
     Active Substance: REMIFENTANIL
     Indication: Pain
     Dosage: (DOSAGE TEXT: DOSING: ACCORDING TO SEDATION DEPTH)
     Route: 042
  6. LAMOTRIGINE [Concomitant]
     Active Substance: LAMOTRIGINE
     Indication: Partial seizures
     Dosage: 500 MG (MILLIGRAM) IN ONE DAY (DOSAGE TEXT: 2 X 250 MG FOR YEARS)
     Route: 048
  7. ESKETAMINE [Concomitant]
     Active Substance: ESKETAMINE
     Indication: Sedation
     Route: 042
  8. PIRITRAMIDE [Concomitant]
     Active Substance: PIRITRAMIDE
     Indication: Pain
     Dosage: (DOSAGE TEXT: DOSING: ACCORDING TO SEDATION DEPTH)
     Route: 042
  9. FOSFOMYCIN [Concomitant]
     Active Substance: FOSFOMYCIN
     Indication: Infection
     Route: 042
  10. MEROPENEM [Concomitant]
     Active Substance: MEROPENEM
     Indication: Infection
     Route: 042
  11. LACOSAMIDE [Concomitant]
     Active Substance: LACOSAMIDE
     Indication: Partial seizures
     Dosage: 300 MG (MILLIGRAM) IN ONE DAY
     Route: 042
  12. MIDAZOLAM [Concomitant]
     Active Substance: MIDAZOLAM
     Indication: Sedation
     Route: 042
  13. PROPOFOL [Concomitant]
     Active Substance: PROPOFOL
     Indication: Sedation
     Route: 042

REACTIONS (3)
  - Fluorosis [Recovering/Resolving]
  - Articular calcification [Recovering/Resolving]
  - Pain [Recovering/Resolving]
